FAERS Safety Report 9238772 (Version 2)
Quarter: 2013Q2

REPORT INFORMATION
  Report Type: Report from Study
  Country: US (occurrence: US)
  Receive Date: 20130418
  Receipt Date: 20130429
  Transmission Date: 20140414
  Serious: Yes (Hospitalization, Other)
  Sender: FDA-Public Use
  Company Number: PHEH2013US007119

PATIENT
  Age: 50 Year
  Sex: Male

DRUGS (6)
  1. GILENYA [Suspect]
     Indication: MULTIPLE SCLEROSIS
     Dosage: 0.5 MG, QD
     Route: 048
     Dates: start: 20120131, end: 20130330
  2. ROPINIROLE [Concomitant]
     Dosage: 1 MG, QD
     Route: 048
  3. LOVASTATIN [Concomitant]
     Dosage: 40 MG, QD
     Route: 048
  4. FISH OIL [Concomitant]
     Dosage: 1000 MG, QD
     Route: 048
  5. VITAMIN D3 [Concomitant]
     Route: 048
  6. ADVEL [Concomitant]
     Route: 048

REACTIONS (15)
  - Body temperature increased [Recovering/Resolving]
  - Fall [Not Recovered/Not Resolved]
  - Multiple sclerosis relapse [Recovering/Resolving]
  - Aphasia [Not Recovered/Not Resolved]
  - Delusion [Not Recovered/Not Resolved]
  - Gait disturbance [Not Recovered/Not Resolved]
  - Slow speech [Not Recovered/Not Resolved]
  - Dysarthria [Not Recovered/Not Resolved]
  - Hallucination [Not Recovered/Not Resolved]
  - Alanine aminotransferase increased [Unknown]
  - Electroencephalogram abnormal [Unknown]
  - Lymphocyte count decreased [Unknown]
  - White blood cell count decreased [Unknown]
  - Bacterial infection [Unknown]
  - Aspartate aminotransferase increased [Unknown]
